FAERS Safety Report 7226960-1 (Version None)
Quarter: 2011Q1

REPORT INFORMATION
  Report Type: 
  Country: None (occurrence: None)
  Receive Date: 20110111
  Receipt Date: 20110111
  Transmission Date: 20110831
  Serious: Yes (Life-Threatening, Hospitalization)
  Sender: FDA-Public Use
  Company Number: None

PATIENT
  Age: 53 Year
  Sex: Male
  Weight: 117.9352 kg

DRUGS (1)
  1. DARVOCET [Suspect]
     Indication: ARTHRITIS
     Dosage: 100-650 1 EVERY 6 HRS
     Dates: start: 20050701, end: 20101101

REACTIONS (1)
  - ATRIAL FIBRILLATION [None]
